FAERS Safety Report 25301133 (Version 1)
Quarter: 2025Q2

REPORT INFORMATION
  Report Type: Spontaneous
  Country: US (occurrence: None)
  Receive Date: 20250509
  Receipt Date: 20250509
  Transmission Date: 20250717
  Serious: Yes (Life-Threatening, Disabling)
  Sender: FDA-CTU
  Company Number: None

PATIENT
  Age: 52 Year
  Sex: Female
  Weight: 132.75 kg

DRUGS (1)
  1. VYEPTI [Suspect]
     Active Substance: EPTINEZUMAB-JJMR
     Indication: Migraine
     Dates: start: 20250412

REACTIONS (9)
  - Dizziness [None]
  - Disorientation [None]
  - Swelling face [None]
  - Hypoaesthesia oral [None]
  - Dysarthria [None]
  - Swollen tongue [None]
  - Hypertension [None]
  - Migraine [None]
  - Blepharospasm [None]

NARRATIVE: CASE EVENT DATE: 20250420
